FAERS Safety Report 26146461 (Version 1)
Quarter: 2025Q4

REPORT INFORMATION
  Report Type: Spontaneous
  Country: US (occurrence: US)
  Receive Date: 20251211
  Receipt Date: 20251211
  Transmission Date: 20260118
  Serious: Yes (Other)
  Sender: SANDOZ
  Company Number: US-SANDOZ-SDZ2025US093676

PATIENT
  Sex: Female

DRUGS (5)
  1. IRON SUCROSE [Suspect]
     Active Substance: IRON SUCROSE
     Indication: Anaemia
     Dosage: 300 MG ONE SINGLE DOSE (IRON SUCROSE 100MG/5ML INJECTION)
     Route: 042
     Dates: start: 20251117, end: 20251117
  2. IRON SUCROSE [Suspect]
     Active Substance: IRON SUCROSE
     Dosage: 300 MG ONE SINGLE DOSE (IRON SUCROSE 100MG/5ML INJECTION)
     Route: 042
     Dates: start: 20251124, end: 20251124
  3. IRON SUCROSE [Suspect]
     Active Substance: IRON SUCROSE
     Dosage: 300 MG ONE SINGLE DOSE (IRON SUCROSE 100MG/5ML INJECTION)
     Route: 042
     Dates: start: 20251125, end: 20251125
  4. IRON SUCROSE [Suspect]
     Active Substance: IRON SUCROSE
     Dosage: 300 MG ONE SINGLE DOSE (IRON SUCROSE 100MG/5ML INJECTION)
     Route: 042
     Dates: start: 20251203, end: 20251203
  5. IRON SUCROSE [Suspect]
     Active Substance: IRON SUCROSE
     Dosage: 300 MG ONE SINGLE DOSE (IRON SUCROSE 100MG/5ML INJECTION)
     Route: 042
     Dates: start: 20251209, end: 20251209

REACTIONS (5)
  - Nausea [Recovering/Resolving]
  - Chest pain [Recovering/Resolving]
  - Tachycardia [Recovering/Resolving]
  - Arthralgia [Recovering/Resolving]
  - Syncope [Recovering/Resolving]
